FAERS Safety Report 6126688-5 (Version None)
Quarter: 2009Q1

REPORT INFORMATION
  Report Type: 
  Country: None (occurrence: None)
  Receive Date: 20090320
  Receipt Date: 20090313
  Transmission Date: 20090719
  Serious: Yes (Hospitalization)
  Sender: FDA-Public Use
  Company Number: US-PFIZER INC-2009175275

PATIENT
  Sex: Male
  Weight: 67.12 kg

DRUGS (7)
  1. BLINDED *EFAVIRENZ [Suspect]
     Indication: HIV TEST POSITIVE
     Dosage: UNK MG, 2X/DAY
     Route: 048
     Dates: start: 20050607
  2. BLINDED *PLACEBO [Suspect]
     Indication: HIV TEST POSITIVE
     Dosage: UNK MG, 2X/DAY
     Route: 048
     Dates: start: 20050607
  3. BLINDED MARAVIROC [Suspect]
     Indication: HIV TEST POSITIVE
     Dosage: UNK MG, 2X/DAY
     Route: 048
     Dates: start: 20050607
  4. COMBIVIR [Suspect]
     Indication: HIV INFECTION
     Dosage: 300MG/150MG, BID
     Route: 048
     Dates: start: 20050607
  5. ANDROGEL [Concomitant]
     Dosage: UNK
     Route: 061
     Dates: start: 20070701
  6. CELEXA [Concomitant]
     Dosage: UNK
     Route: 048
     Dates: start: 20040101
  7. VICODIN [Concomitant]
     Dosage: UNK
     Route: 048
     Dates: start: 20060201

REACTIONS (2)
  - ANAEMIA [None]
  - GASTROINTESTINAL HAEMORRHAGE [None]
